FAERS Safety Report 23296131 (Version 1)
Quarter: 2023Q4

REPORT INFORMATION
  Report Type: Spontaneous
  Country: US (occurrence: US)
  Receive Date: 20231214
  Receipt Date: 20231214
  Transmission Date: 20240110
  Serious: No
  Sender: FDA-Public Use
  Company Number: US-SA-SAC20231211001371

PATIENT
  Sex: Female
  Weight: 66.5 kg

DRUGS (14)
  1. DUPIXENT [Suspect]
     Active Substance: DUPILUMAB
     Indication: Dermatitis atopic
     Dosage: 300 MG, QOW
     Route: 058
  2. PROTOPIC [Concomitant]
     Active Substance: TACROLIMUS
  3. TRIAMCINOLONE ACETONIDE [Concomitant]
     Active Substance: TRIAMCINOLONE ACETONIDE
  4. CLOBETASOL PROPIONATE [Concomitant]
     Active Substance: CLOBETASOL PROPIONATE
  5. VITAMIN D3 [Concomitant]
     Active Substance: CHOLECALCIFEROL
  6. FISH OIL [Concomitant]
     Active Substance: FISH OIL
  7. GLUCOSAMINE [Concomitant]
     Active Substance: GLUCOSAMINE
  8. COLLAGEN [Concomitant]
     Active Substance: COLLAGEN
  9. FLONASE ALLERGY RELIEF [Concomitant]
     Active Substance: FLUTICASONE PROPIONATE
  10. TYLENOL [Concomitant]
     Active Substance: ACETAMINOPHEN
  11. HYDROXYZINE HYDROCHLORIDE [Concomitant]
     Active Substance: HYDROXYZINE HYDROCHLORIDE
  12. VITAMINS NOS [Concomitant]
     Active Substance: VITAMINS
  13. HERBALS\TURMERIC [Concomitant]
     Active Substance: HERBALS\TURMERIC
  14. GINGER [Concomitant]
     Active Substance: GINGER

REACTIONS (1)
  - Therapeutic product effect incomplete [Unknown]
